FAERS Safety Report 17537012 (Version 2)
Quarter: 2020Q1

REPORT INFORMATION
  Report Type: Spontaneous
  Country: RU (occurrence: RU)
  Receive Date: 20200313
  Receipt Date: 20200327
  Transmission Date: 20200409
  Serious: Yes (Hospitalization)
  Sender: FDA-Public Use
  Company Number: RU-SA-2020SA045955

PATIENT
  Age: 55 Year
  Sex: Female

DRUGS (21)
  1. FORADIL [Concomitant]
     Active Substance: FORMOTEROL FUMARATE
     Indication: BRONCHIECTASIS
  2. DUPIXENT [Suspect]
     Active Substance: DUPILUMAB
     Indication: ASTHMA
     Dosage: 600 MG, 1X
     Route: 058
     Dates: start: 201911, end: 201911
  3. BUDESONIDE;FORMOTEROL [Concomitant]
     Active Substance: BUDESONIDE\FORMOTEROL
     Indication: ASTHMA
     Dosage: UNK UNK, BID
  4. BERODUAL [Concomitant]
     Active Substance: FENOTEROL HYDROBROMIDE\IPRATROPIUM BROMIDE
     Indication: BRONCHIECTASIS
  5. SYMBICORT [Concomitant]
     Active Substance: BUDESONIDE\FORMOTEROL FUMARATE DIHYDRATE
     Indication: BRONCHIECTASIS
  6. TOLPERISONE [Concomitant]
     Active Substance: TOLPERISONE
     Indication: MUSCLE RELAXANT THERAPY
     Dosage: 1 DF, HS
  7. EUFILLIN [Concomitant]
     Indication: ASTHMA
  8. FENOTEROL;IPRATROPIUM [Concomitant]
     Active Substance: FENOTEROL\IPRATROPIUM
  9. CELECOXIB. [Concomitant]
     Active Substance: CELECOXIB
     Dosage: 1 DF, QD
  10. OMEPRAZOLE. [Concomitant]
     Active Substance: OMEPRAZOLE
     Dosage: 1 DF, BID
  11. INIECTRAN [Concomitant]
     Dosage: 2 ML, TID
     Route: 030
  12. DUPIXENT [Suspect]
     Active Substance: DUPILUMAB
     Dosage: 300 MG, QOW
     Route: 058
  13. FLUTICASONE;VILANTEROL [Concomitant]
     Active Substance: FLUTICASONE FUROATE\VILANTEROL TRIFENATATE
     Indication: ASTHMA
     Dosage: 1 DF, QD
  14. BERODUAL [Concomitant]
     Active Substance: FENOTEROL HYDROBROMIDE\IPRATROPIUM BROMIDE
     Indication: ASTHMA
     Dosage: UNK UNK, BID
     Route: 055
  15. TIOTROPIUM BROMIDE [Concomitant]
     Active Substance: TIOTROPIUM BROMIDE
     Dosage: 2 DF, QD
     Route: 055
  16. PREDNISOLONE. [Concomitant]
     Active Substance: PREDNISOLONE
     Indication: ASTHMA
     Dosage: 1 DF, QD
  17. FORADIL [Concomitant]
     Active Substance: FORMOTEROL FUMARATE
     Indication: ASTHMA
     Route: 055
  18. CELECOXIB. [Concomitant]
     Active Substance: CELECOXIB
     Dosage: 1 DF, BID
  19. DIMETHYL SULFOXIDE. [Concomitant]
     Active Substance: DIMETHYL SULFOXIDE
     Dosage: UNK UNK, QD
  20. ELBONA [Concomitant]
     Dosage: UNK UNK, BID
     Route: 030
  21. SYMBICORT [Concomitant]
     Active Substance: BUDESONIDE\FORMOTEROL FUMARATE DIHYDRATE
     Indication: ASTHMA
     Dosage: 2 DF, BID
     Route: 055

REACTIONS (11)
  - Respiratory tract congestion [Recovering/Resolving]
  - Wheezing [Recovering/Resolving]
  - Hepatomegaly [Unknown]
  - Body temperature increased [Unknown]
  - Eosinophil count increased [Unknown]
  - Dyspnoea [Recovering/Resolving]
  - Tonsillitis [Unknown]
  - Cough [Recovering/Resolving]
  - Laryngeal pain [Unknown]
  - Left ventricular dysfunction [Unknown]
  - Arteriosclerosis [Unknown]

NARRATIVE: CASE EVENT DATE: 202002
